FAERS Safety Report 7086256-8 (Version None)
Quarter: 2010Q4

REPORT INFORMATION
  Report Type: 
  Country: None (occurrence: None)
  Receive Date: 20101027
  Receipt Date: 20101022
  Transmission Date: 20110411
  Serious: Yes (Hospitalization)
  Sender: FDA-Public Use
  Company Number: US-ACCORD-006425

PATIENT
  Age: 29 Year
  Sex: Female
  Weight: 73 kg

DRUGS (10)
  1. TOPIRAMATE [Suspect]
     Indication: MIGRAINE
     Dosage: 50.00-MG-2.00PER /ORAL
     Route: 048
  2. FLUOXETINE [Concomitant]
  3. BACLOFEN [Concomitant]
  4. GLYCOL (POLYETHYLENE GLYCOL) [Concomitant]
  5. BISACODYL (BISACODYL) [Concomitant]
  6. CONTRACEPTIVES NOS (CONTRACEPTIVES NOS) [Concomitant]
  7. SUMATRIPTAN SUCCINATE [Concomitant]
  8. PROMETHAZINE [Concomitant]
  9. ACETAMINOPHEN [Concomitant]
  10. LORAZEPAM [Concomitant]

REACTIONS (8)
  - ACUTE PSYCHOSIS [None]
  - AREFLEXIA [None]
  - DECREASED APPETITE [None]
  - DYSKINESIA [None]
  - MYOCLONUS [None]
  - PARANOIA [None]
  - SOCIAL AVOIDANT BEHAVIOUR [None]
  - TARDIVE DYSKINESIA [None]
